FAERS Safety Report 4442254-1 (Version None)
Quarter: 2004Q3

REPORT INFORMATION
  Report Type: 
  Country: None (occurrence: None)
  Receive Date: 20040903
  Receipt Date: 20040422
  Transmission Date: 20050211
  Serious: Yes (Other)
  Sender: FDA-Public Use
  Company Number: 2004UW08227

PATIENT
  Age: 69 Year
  Sex: Female

DRUGS (3)
  1. CRESTOR [Suspect]
     Indication: HYPERLIPIDAEMIA
     Dosage: 10 MG PO
     Route: 048
     Dates: start: 20040219, end: 20040225
  2. NEXIUM [Suspect]
     Dosage: 40 MG PO
     Route: 048
  3. PRAVACHOL [Concomitant]

REACTIONS (1)
  - DYSURIA [None]
